FAERS Safety Report 19231032 (Version 3)
Quarter: 2021Q3

REPORT INFORMATION
  Report Type: Report from Study
  Country: US (occurrence: US)
  Receive Date: 20210507
  Receipt Date: 20210813
  Transmission Date: 20211014
  Serious: Yes (Death, Hospitalization, Other)
  Sender: FDA-Public Use
  Company Number: US-BRISTOL-MYERS SQUIBB COMPANY-BMS-2021-044484

PATIENT
  Age: 72 Year
  Sex: Male
  Weight: 82.5 kg

DRUGS (2)
  1. IPILIMUMAB [Suspect]
     Active Substance: IPILIMUMAB
     Indication: PROSTATE CANCER METASTATIC
     Dosage: 1 MILLIGRAM/KILOGRAM, Q3WK, 132.8 MILIGRAM
     Route: 042
     Dates: start: 20210303, end: 20210414
  2. NIVOLUMAB [Suspect]
     Active Substance: NIVOLUMAB
     Indication: PROSTATE CANCER METASTATIC
     Dosage: 3 MILLIGRAM/KILOGRAM, Q3WK, 247 MILLIGRAM
     Route: 042
     Dates: start: 20210303, end: 20210414

REACTIONS (3)
  - Malignant neoplasm progression [Fatal]
  - Hypokalaemia [Not Recovered/Not Resolved]
  - Cerebrovascular accident [Not Recovered/Not Resolved]

NARRATIVE: CASE EVENT DATE: 20210423
